FAERS Safety Report 6403304-6 (Version None)
Quarter: 2009Q4

REPORT INFORMATION
  Report Type: 
  Country: None (occurrence: None)
  Receive Date: 20091016
  Receipt Date: 20081208
  Transmission Date: 20100525
  Serious: No
  Sender: FDA-Public Use
  Company Number: A0759620A

PATIENT
  Age: 85 Year
  Sex: Female

DRUGS (11)
  1. CEFTIN [Suspect]
     Indication: DRUG USE FOR UNKNOWN INDICATION
     Route: 065
  2. LAMICTAL [Suspect]
     Dosage: 100MG TWICE PER DAY
     Route: 048
     Dates: start: 20080401
  3. COUMADIN [Concomitant]
  4. ZETIA [Concomitant]
  5. UNKNOWN MEDICATION [Concomitant]
  6. DIGOXIN [Concomitant]
  7. CARVEDILOL [Concomitant]
  8. ASPIRIN [Concomitant]
  9. DYAZIDE [Concomitant]
  10. VALIUM [Concomitant]
  11. URSODIOL [Concomitant]

REACTIONS (8)
  - BALANCE DISORDER [None]
  - DIZZINESS [None]
  - HYPERSENSITIVITY [None]
  - NAUSEA [None]
  - PHONOPHOBIA [None]
  - PHOTOPHOBIA [None]
  - VERTIGO [None]
  - VISUAL IMPAIRMENT [None]
